FAERS Safety Report 5939220-3 (Version None)
Quarter: 2008Q4

REPORT INFORMATION
  Report Type: 
  Country: None (occurrence: None)
  Receive Date: 20081103
  Receipt Date: 20081024
  Transmission Date: 20090506
  Serious: Yes (Hospitalization)
  Sender: FDA-Public Use
  Company Number: GB-PFIZER INC-2008080484

PATIENT
  Sex: Female

DRUGS (1)
  1. DEPO-PROVERA SUSPENSION/INJ [Suspect]
     Dosage: FREQ:7TH INJECTION
     Route: 030
     Dates: start: 20080905, end: 20080905

REACTIONS (5)
  - CHEST PAIN [None]
  - DECREASED APPETITE [None]
  - INJECTION SITE ABSCESS [None]
  - LOSS OF CONTROL OF LEGS [None]
  - RASH [None]
